FAERS Safety Report 9746425 (Version 1)
Quarter: 2013Q4

REPORT INFORMATION
  Report Type: Spontaneous
  Country: ES (occurrence: None)
  Receive Date: 20131205
  Receipt Date: 20131205
  Transmission Date: 20140711
  Serious: No
  Sender: FDA-Public Use
  Company Number: 2013AP010047

PATIENT
  Age: 74 Year
  Sex: Female

DRUGS (1)
  1. QUETIAPINE FUMARATE (QUETIAPINE FUMARATE) [Suspect]
     Dates: start: 20130717, end: 20131112

REACTIONS (4)
  - Psychomotor hyperactivity [None]
  - Peripheral coldness [None]
  - Headache [None]
  - Psychomotor hyperactivity [None]
